FAERS Safety Report 13697232 (Version 1)
Quarter: 2017Q2

REPORT INFORMATION
  Report Type: Spontaneous
  Country: US (occurrence: None)
  Receive Date: 20170628
  Receipt Date: 20170628
  Transmission Date: 20170830
  Serious: Yes (Disabling)
  Sender: FDA-Public Use
  Company Number: GS17057116

PATIENT
  Age: 24 Year
  Sex: Female
  Weight: 76 kg

DRUGS (2)
  1. OLD SPICE FRESH COLLECTION FIJI [Suspect]
     Active Substance: ALUMINUM ZIRCONIUM TRICHLOROHYDREX GLY
     Route: 061
     Dates: start: 201611
  2. ATIVAN [Concomitant]
     Active Substance: LORAZEPAM

REACTIONS (7)
  - Sleep disorder due to general medical condition, insomnia type [None]
  - Deformity [None]
  - Impaired work ability [None]
  - Secretion discharge [None]
  - Hypersensitivity [None]
  - Chemical burn of skin [None]
  - Skin fissures [None]

NARRATIVE: CASE EVENT DATE: 201611
